FAERS Safety Report 4761346-0 (Version None)
Quarter: 2005Q3

REPORT INFORMATION
  Report Type: 
  Country: None (occurrence: None)
  Receive Date: 20050901
  Receipt Date: 20050415
  Transmission Date: 20060218
  Serious: Yes (Hospitalization)
  Sender: FDA-Public Use
  Company Number: 2005-FR-00257

PATIENT
  Age: 73 Year
  Sex: Female

DRUGS (4)
  1. ASPIRIN [Suspect]
     Indication: CORONARY ARTERY DISEASE
     Dosage: 75 MG, ORAL
     Route: 048
     Dates: start: 20031201, end: 20050331
  2. ASPIRIN [Suspect]
     Indication: PROPHYLAXIS
     Dosage: 75 MG, ORAL
     Route: 048
     Dates: start: 20031201, end: 20050331
  3. MERTFORMIN [Concomitant]
  4. ATORVASTATIN CALCIUM [Concomitant]

REACTIONS (5)
  - BLOOD UREA INCREASED [None]
  - DUODENAL ULCER [None]
  - EROSIVE DUODENITIS [None]
  - HAEMOGLOBIN DECREASED [None]
  - INTESTINAL ULCER [None]
